FAERS Safety Report 18356998 (Version 1)
Quarter: 2020Q4

REPORT INFORMATION
  Report Type: Report from Study
  Country: None (occurrence: US)
  Receive Date: 20201007
  Receipt Date: 20201007
  Transmission Date: 20210114
  Serious: Yes (Other)
  Sender: FDA-Public Use
  Company Number: US-ABBVIE-20K-163-3272279-00

PATIENT
  Age: 36 Year
  Sex: Female

DRUGS (2)
  1. HUMIRA [Suspect]
     Active Substance: ADALIMUMAB
     Dosage: CITRATE FREE
     Route: 058
  2. HUMIRA [Suspect]
     Active Substance: ADALIMUMAB
     Indication: CROHN^S DISEASE
     Dosage: CITRATE FREE
     Route: 058

REACTIONS (9)
  - Fatigue [Unknown]
  - Ostomy bag placement [Unknown]
  - Maternal exposure during pregnancy [Unknown]
  - Colectomy [Unknown]
  - Stress [Unknown]
  - Ileostomy closure [Unknown]
  - Colectomy [Unknown]
  - Ileostomy [Unknown]
  - Live birth [Unknown]

NARRATIVE: CASE EVENT DATE: 2011
